FAERS Safety Report 6249217-4 (Version None)
Quarter: 2009Q2

REPORT INFORMATION
  Report Type: 
  Country: None (occurrence: None)
  Receive Date: 20090624
  Receipt Date: 20090624
  Transmission Date: 20091009
  Serious: No
  Sender: FDA-Public Use
  Company Number: None

PATIENT
  Age: 67 Year
  Sex: Female
  Weight: 58.0604 kg

DRUGS (1)
  1. ABILIFY [Suspect]
     Indication: BIPOLAR DISORDER
     Dosage: 10MG ONE TIME DAILY PO
     Route: 048
     Dates: start: 20071110, end: 20081208

REACTIONS (2)
  - DRY MOUTH [None]
  - TARDIVE DYSKINESIA [None]
